FAERS Safety Report 4662980-9 (Version None)
Quarter: 2005Q2

REPORT INFORMATION
  Report Type: 
  Country: None (occurrence: None)
  Receive Date: 20050511
  Receipt Date: 20040512
  Transmission Date: 20051028
  Serious: Yes (Hospitalization)
  Sender: FDA-Public Use
  Company Number: ZONI001422

PATIENT
  Sex: Female

DRUGS (5)
  1. ZONEGRAN [Suspect]
     Indication: CONVULSION
     Dosage: SEE IMAGE
     Route: 048
     Dates: start: 20040104, end: 20040101
  2. ZONEGRAN [Suspect]
     Indication: CONVULSION
     Dosage: SEE IMAGE
     Route: 048
     Dates: start: 20040101, end: 20040510
  3. ZONEGRAN [Suspect]
     Indication: CONVULSION
     Dosage: SEE IMAGE
     Route: 048
     Dates: start: 20040511
  4. DILANTIN [Concomitant]
  5. TOPAMAX [Concomitant]

REACTIONS (1)
  - CONVULSION [None]
